FAERS Safety Report 17645910 (Version 1)
Quarter: 2020Q2

REPORT INFORMATION
  Report Type: Spontaneous
  Country: US (occurrence: US)
  Receive Date: 20200408
  Receipt Date: 20200408
  Transmission Date: 20200713
  Serious: No
  Sender: FDA-Public Use
  Company Number: US-MICRO LABS LIMITED-ML2020-00279

PATIENT
  Sex: Female
  Weight: 70.37 kg

DRUGS (3)
  1. ALPRAZOLAM. [Concomitant]
     Active Substance: ALPRAZOLAM
     Indication: ANXIETY
     Dosage: A FEW PINCHES OF GENERIC XANAX, LIKE GRAINS
  2. RASAGILINE TABLETS, 1 MG [Suspect]
     Active Substance: RASAGILINE
     Dosage: DOSE REDUCED, FOR A TOTAL OF 14 DAYS FOR 2-3 MONTHS
  3. RASAGILINE TABLETS, 1 MG [Suspect]
     Active Substance: RASAGILINE
     Indication: PARKINSON^S DISEASE
     Dosage: 1 TABLET PER DAY
     Route: 048

REACTIONS (6)
  - Alopecia [Unknown]
  - Blood pressure increased [Unknown]
  - Lipoma [Unknown]
  - Trigger finger [Unknown]
  - Osteoarthritis [Recovered/Resolved]
  - Back pain [Recovered/Resolved]
